FAERS Safety Report 5639919-2 (Version None)
Quarter: 2008Q1

REPORT INFORMATION
  Report Type: 
  Country: None (occurrence: None)
  Receive Date: 20080225
  Receipt Date: 20080212
  Transmission Date: 20080703
  Serious: Yes (Life-Threatening)
  Sender: FDA-Public Use
  Company Number: B0508642A

PATIENT
  Age: 60 Year
  Sex: Female

DRUGS (3)
  1. WELLBUTRIN SR [Suspect]
     Indication: DEPRESSION
     Dosage: 150 MG/ ORAL
     Route: 048
     Dates: start: 20080204, end: 20080210
  2. VENLAFAXINE HYDROCHLORIDE [Concomitant]
  3. CLONAZEPAM [Concomitant]

REACTIONS (1)
  - DERMATITIS ALLERGIC [None]
